FAERS Safety Report 16983069 (Version 1)
Quarter: 2019Q4

REPORT INFORMATION
  Report Type: Spontaneous
  Country: US (occurrence: US)
  Receive Date: 20191030
  Receipt Date: 20191030
  Transmission Date: 20200122
  Serious: No
  Sender: FDA-Public Use
  Company Number: None

PATIENT
  Age: 47 Year
  Sex: Female
  Weight: 97.65 kg

DRUGS (16)
  1. LOSARTAN. [Concomitant]
     Active Substance: LOSARTAN
  2. HUMALOG 75/25 FLEX PEN [Concomitant]
  3. METFORMIN ER [Concomitant]
     Active Substance: METFORMIN HYDROCHLORIDE
  4. CLONADINE [Concomitant]
  5. HCTZ [Concomitant]
     Active Substance: HYDROCHLOROTHIAZIDE
  6. ASPIRIN. [Concomitant]
     Active Substance: ASPIRIN
  7. PROAIR HFA [Concomitant]
     Active Substance: ALBUTEROL SULFATE
  8. FIORICET [Concomitant]
     Active Substance: ACETAMINOPHEN\BUTALBITAL\CAFFEINE
  9. JARDIANCE [Suspect]
     Active Substance: EMPAGLIFLOZIN
     Indication: TYPE 2 DIABETES MELLITUS
     Dosage: ?          QUANTITY:1 TABLET(S);?
     Route: 048
     Dates: start: 20190118, end: 20190204
  10. CLONAZEPAN [Concomitant]
     Active Substance: CLONAZEPAM
  11. METROPROLOL [Concomitant]
     Active Substance: METOPROLOL
  12. NASOCORT [Concomitant]
     Active Substance: BUDESONIDE
  13. RANITIDINE. [Concomitant]
     Active Substance: RANITIDINE
  14. DILAUDID [Concomitant]
     Active Substance: HYDROMORPHONE HYDROCHLORIDE
  15. CLARITAIN [Concomitant]
  16. ALVORTOSTATIN [Concomitant]

REACTIONS (1)
  - Anovulvar fistula [None]

NARRATIVE: CASE EVENT DATE: 20190128
